FAERS Safety Report 13098175 (Version 1)
Quarter: 2017Q1

REPORT INFORMATION
  Report Type: Spontaneous
  Country: IT (occurrence: IT)
  Receive Date: 20170109
  Receipt Date: 20170109
  Transmission Date: 20170428
  Serious: Yes (Other)
  Sender: FDA-Public Use
  Company Number: IT-TEVA-726291ACC

PATIENT
  Age: 49 Year
  Sex: Female

DRUGS (2)
  1. ALOPERIDOLO [Suspect]
     Active Substance: HALOPERIDOL
  2. LORAZEPAM. [Suspect]
     Active Substance: LORAZEPAM

REACTIONS (3)
  - Asthenia [Unknown]
  - Intentional self-injury [Unknown]
  - Self-medication [Unknown]
